FAERS Safety Report 6839347-8 (Version None)
Quarter: 2010Q3

REPORT INFORMATION
  Report Type: 
  Country: None (occurrence: None)
  Receive Date: 20100714
  Receipt Date: 20100707
  Transmission Date: 20110219
  Serious: Yes (Death, Hospitalization, Other)
  Sender: FDA-Public Use
  Company Number: PHHY2010JP25584

PATIENT
  Age: 33 Year
  Sex: Male

DRUGS (20)
  1. STI571/CGP57148B T35717+TAB [Suspect]
     Indication: ACUTE LYMPHOCYTIC LEUKAEMIA
     Dosage: 600 MG DAILY
     Route: 048
     Dates: start: 20080830, end: 20081005
  2. STI571/CGP57148B T35717+TAB [Suspect]
     Dosage: 600 MG DAILY
     Route: 048
     Dates: start: 20081009, end: 20081026
  3. STI571/CGP57148B T35717+TAB [Suspect]
     Dosage: 600 MG DAILY
     Route: 048
     Dates: start: 20081105, end: 20081207
  4. METHOTREXATE [Suspect]
     Indication: ACUTE LYMPHOCYTIC LEUKAEMIA
     Dosage: 15 MG
     Dates: start: 20081006, end: 20081006
  5. METHOTREXATE [Suspect]
     Dosage: 15 MG
     Dates: start: 20081107, end: 20081107
  6. CYTARABINE [Suspect]
     Indication: ACUTE LYMPHOCYTIC LEUKAEMIA
     Dosage: 40 MG
     Dates: start: 20081006, end: 20081006
  7. CYTARABINE [Suspect]
     Dosage: 40 MG
     Dates: start: 20081107, end: 20081107
  8. HYDREA [Concomitant]
     Dosage: 300 MG, UNK
     Route: 048
     Dates: start: 20080819, end: 20080822
  9. PREDONINE [Concomitant]
     Dosage: 100 MG, UNK
     Route: 041
     Dates: start: 20080819, end: 20080829
  10. COTRIM [Concomitant]
     Dosage: 1 G, UNK
     Route: 048
     Dates: start: 20080820
  11. TAGAMET [Concomitant]
     Dosage: 400 MG, UNK
     Route: 048
     Dates: start: 20080820, end: 20080903
  12. FLUCONAZOLE [Concomitant]
     Dosage: 200 MG, UNK
     Route: 048
     Dates: start: 20080824
  13. FLUCONAZOLE [Concomitant]
     Dosage: 400 MG, UNK
     Route: 048
  14. GRAN [Concomitant]
     Dosage: 300 UG, UNK
     Route: 058
     Dates: start: 20080901, end: 20081019
  15. MAGMITT KENEI [Concomitant]
     Dosage: 990 MG, UNK
     Route: 048
     Dates: start: 20080916
  16. MAXIPIME [Concomitant]
     Dosage: 4 G, UNK
     Route: 041
     Dates: start: 20081013, end: 20081023
  17. GASTER D [Concomitant]
     Dosage: 20 MG, UNK
     Route: 048
     Dates: start: 20080904
  18. CRAVIT [Concomitant]
     Dosage: 400 MG, UNK
     Route: 048
     Dates: start: 20081204
  19. URSO 250 [Concomitant]
     Dosage: 300 MG, UNK
     Route: 048
     Dates: start: 20081204
  20. NEORAL [Concomitant]
     Dosage: 200 MG, UNK
     Route: 041
     Dates: start: 20081217

REACTIONS (3)
  - ACUTE LYMPHOCYTIC LEUKAEMIA RECURRENT [None]
  - BONE MARROW FAILURE [None]
  - STEM CELL TRANSPLANT [None]
